FAERS Safety Report 25500905 (Version 2)
Quarter: 2025Q3

REPORT INFORMATION
  Report Type: Spontaneous
  Country: RU (occurrence: RU)
  Receive Date: 20250701
  Receipt Date: 20250905
  Transmission Date: 20251020
  Serious: Yes (Other)
  Sender: NOVARTIS
  Company Number: RU-002147023-NVSC2025RU101884

PATIENT
  Age: 30 Year
  Sex: Female

DRUGS (4)
  1. DABRAFENIB [Suspect]
     Active Substance: DABRAFENIB
     Indication: Metastases to liver
     Dosage: 150 MG, BID
     Route: 048
     Dates: start: 20240209
  2. DABRAFENIB [Suspect]
     Active Substance: DABRAFENIB
     Indication: Malignant melanoma
  3. TRAMETINIB [Suspect]
     Active Substance: TRAMETINIB
     Indication: Metastasis
     Dosage: 2 MG, QD
     Route: 048
     Dates: start: 20240209
  4. TRAMETINIB [Suspect]
     Active Substance: TRAMETINIB
     Indication: Malignant melanoma

REACTIONS (5)
  - Gastrointestinal oedema [Recovered/Resolved]
  - Small intestinal perforation [Recovered/Resolved]
  - Skin hypertrophy [Recovered/Resolved]
  - Skin induration [Recovered/Resolved]
  - Effusion [Recovered/Resolved]

NARRATIVE: CASE EVENT DATE: 20241228
